FAERS Safety Report 5313581-0 (Version None)
Quarter: 2007Q2

REPORT INFORMATION
  Report Type: 
  Country: None (occurrence: None)
  Receive Date: 20070501
  Receipt Date: 20070419
  Transmission Date: 20071010
  Serious: Yes (Hospitalization)
  Sender: FDA-Public Use
  Company Number: SE-AMGEN-UK220382

PATIENT
  Sex: Female

DRUGS (7)
  1. KINERET [Suspect]
     Indication: POLYARTHRITIS
     Route: 058
     Dates: start: 20021014
  2. METHOTREXATE [Concomitant]
     Route: 048
  3. FOLACIN [Concomitant]
     Route: 048
  4. TENORMIN [Concomitant]
     Route: 048
  5. NAPROSYN - SLOW RELEASE [Concomitant]
     Route: 048
  6. PLENDIL [Concomitant]
     Route: 048
  7. ORUDIS - SLOW RELEASE [Concomitant]
     Route: 048

REACTIONS (2)
  - CHOLECYSTITIS [None]
  - CHOLELITHIASIS [None]
